FAERS Safety Report 4805782-2 (Version None)
Quarter: 2005Q4

REPORT INFORMATION
  Report Type: 
  Country: None (occurrence: None)
  Receive Date: 20051018
  Receipt Date: 20051018
  Transmission Date: 20060501
  Serious: Yes (Life-Threatening, Hospitalization)
  Sender: FDA-Public Use
  Company Number: None

PATIENT
  Age: 70 Year
  Sex: Male
  Weight: 97.0698 kg

DRUGS (2)
  1. LOVASTATIN [Suspect]
     Indication: CORONARY ARTERY DISEASE
     Dosage: 20MG  HS PO
     Route: 048
     Dates: start: 20030407, end: 20050829
  2. LOVASTATIN [Suspect]
     Indication: DIABETES MELLITUS
     Dosage: 20MG  HS PO
     Route: 048
     Dates: start: 20030407, end: 20050829

REACTIONS (4)
  - BLOOD CREATINE PHOSPHOKINASE INCREASED [None]
  - BLOOD CREATININE INCREASED [None]
  - CHEST PAIN [None]
  - DYSPNOEA [None]
